FAERS Safety Report 11733851 (Version 3)
Quarter: 2015Q4

REPORT INFORMATION
  Report Type: Report from Study
  Country: US (occurrence: US)
  Receive Date: 20151113
  Receipt Date: 20151125
  Transmission Date: 20160304
  Serious: Yes (Hospitalization, Other)
  Sender: FDA-Public Use
  Company Number: US-AMGEN-USASL2015118221

PATIENT
  Age: 57 Year
  Sex: Female

DRUGS (1)
  1. ENBREL [Suspect]
     Active Substance: ETANERCEPT
     Indication: RHEUMATOID ARTHRITIS
     Dosage: 50 MG, QWK
     Route: 065
     Dates: start: 20100407

REACTIONS (8)
  - Hypotension [Unknown]
  - Pericardial effusion [Unknown]
  - Rheumatoid arthritis [Unknown]
  - Urinary tract infection [Unknown]
  - Condition aggravated [Unknown]
  - Pericarditis [Recovering/Resolving]
  - Adrenal insufficiency [Unknown]
  - Pain [Unknown]

NARRATIVE: CASE EVENT DATE: 20151104
